FAERS Safety Report 9283223 (Version 1)
Quarter: 2013Q2

REPORT INFORMATION
  Report Type: Spontaneous
  Country: US (occurrence: US)
  Receive Date: 20130510
  Receipt Date: 20130510
  Transmission Date: 20140414
  Serious: No
  Sender: FDA-Public Use
  Company Number: US-GLAXOSMITHKLINE-A0989079A

PATIENT
  Age: 50 Year
  Sex: Female

DRUGS (3)
  1. TYKERB [Suspect]
     Indication: BREAST CANCER
     Dosage: 4TAB PER DAY
     Route: 048
     Dates: start: 20120807, end: 20120810
  2. VENLAFAXINE [Concomitant]
  3. IMODIUM [Concomitant]

REACTIONS (9)
  - Rash [Not Recovered/Not Resolved]
  - Diarrhoea [Unknown]
  - Rash erythematous [Unknown]
  - Rash [Unknown]
  - Paraesthesia oral [Unknown]
  - Tongue dry [Unknown]
  - Throat irritation [Unknown]
  - Dysgeusia [Unknown]
  - Stomatitis [Unknown]
